FAERS Safety Report 5622206-6 (Version None)
Quarter: 2008Q1

REPORT INFORMATION
  Report Type: 
  Country: None (occurrence: None)
  Receive Date: 20080211
  Receipt Date: 20080206
  Transmission Date: 20080703
  Serious: Yes (Death)
  Sender: FDA-Public Use
  Company Number: IN-ASTRAZENECA-2008AP00902

PATIENT

DRUGS (1)
  1. BUPIVACAINE [Suspect]

REACTIONS (1)
  - CONVULSION [None]
